FAERS Safety Report 6648895-5 (Version None)
Quarter: 2010Q1

REPORT INFORMATION
  Report Type: 
  Country: None (occurrence: None)
  Receive Date: 20100324
  Receipt Date: 20100317
  Transmission Date: 20100710
  Serious: Yes (Hospitalization, Other)
  Sender: FDA-Public Use
  Company Number: US-TEVA-218564USA

PATIENT
  Sex: Female
  Weight: 43 kg

DRUGS (3)
  1. CLARAVIS [Suspect]
     Route: 048
     Dates: start: 20091019, end: 20091028
  2. ESCITALOPRAM OXALATE [Concomitant]
     Route: 048
     Dates: end: 20091028
  3. VITAMINS [Concomitant]
     Indication: VITAMIN SUPPLEMENTATION
     Route: 048
     Dates: end: 20091028

REACTIONS (4)
  - DECREASED APPETITE [None]
  - EMOTIONAL DISORDER [None]
  - MALAISE [None]
  - UNINTENDED PREGNANCY [None]
